FAERS Safety Report 7105578-5 (Version None)
Quarter: 2010Q4

REPORT INFORMATION
  Report Type: 
  Country: None (occurrence: None)
  Receive Date: 20101110
  Receipt Date: 20101025
  Transmission Date: 20110411
  Serious: Yes (Disabling)
  Sender: FDA-Public Use
  Company Number: 2010PV000083

PATIENT
  Age: 64 Year
  Sex: Male

DRUGS (8)
  1. DEPOCYT [Suspect]
     Indication: CENTRAL NERVOUS SYSTEM LYMPHOMA
     Dosage: 50 MG;Q3W;INTH
     Route: 037
  2. METHOTREXATE [Suspect]
     Dosage: 3 G/M2; IV
     Route: 042
  3. CYTARABINE [Suspect]
     Dosage: 3 G/M2; IV
     Route: 042
  4. VINCRISTINE [Concomitant]
  5. IFOSFAMIDE [Concomitant]
  6. DEXAMETHASONE [Concomitant]
  7. PROCARBAZINE HYDROCHLORIDE [Concomitant]
  8. VINDESINE [Concomitant]

REACTIONS (3)
  - CSF PROTEIN INCREASED [None]
  - DRUG INTERACTION [None]
  - PARESIS [None]
